FAERS Safety Report 10270360 (Version 1)
Quarter: 2014Q2

REPORT INFORMATION
  Report Type: Spontaneous
  Country: US (occurrence: None)
  Receive Date: 20140627
  Receipt Date: 20140627
  Transmission Date: 20141212
  Serious: Yes (Hospitalization)
  Sender: FDA-Public Use
  Company Number: None

PATIENT
  Age: 80 Year
  Sex: Male
  Weight: 72.7 kg

DRUGS (2)
  1. CARBOPLATIN [Suspect]
     Dosage: FINAL TX WAS WITH DOSE LEVEL DECREASE DUE TO PRIOR CYCLE TOXICITY
  2. TAXOL [Suspect]

REACTIONS (3)
  - Pyrexia [None]
  - Dehydration [None]
  - Hypophagia [None]
